FAERS Safety Report 8879580 (Version 4)
Quarter: 2016Q3

REPORT INFORMATION
  Report Type: Spontaneous
  Country: JP (occurrence: JP)
  Receive Date: 20121031
  Receipt Date: 20160928
  Transmission Date: 20161109
  Serious: Yes (Death, Other)
  Sender: FDA-Public Use
  Company Number: JP-OTSUKA-JP-2012-16502

PATIENT
  Age: 76 Year
  Sex: Male
  Weight: 44 kg

DRUGS (3)
  1. PLETAAL OD TABLETS 100MG [Suspect]
     Active Substance: CILOSTAZOL
     Indication: PERIPHERAL ARTERIAL OCCLUSIVE DISEASE
     Dosage: 100 MG, BID
     Route: 048
     Dates: start: 20120820, end: 20120927
  2. OMEPRAL [Concomitant]
     Active Substance: OMEPRAZOLE
     Indication: GASTRIC MUCOSAL LESION
     Dosage: 10 MG, QD
     Route: 048
     Dates: start: 20120824, end: 20120927
  3. OPAPROSMON [Concomitant]
     Active Substance: LIMAPROST
     Indication: PERIPHERAL ARTERIAL OCCLUSIVE DISEASE
     Dosage: 15 ?G, QD
     Route: 048
     Dates: start: 20120824, end: 20120927

REACTIONS (4)
  - Thrombocytopenia [Fatal]
  - Bronchitis [Unknown]
  - Agranulocytosis [Fatal]
  - Enterocolitis [Unknown]

NARRATIVE: CASE EVENT DATE: 20120924
